FAERS Safety Report 7813829-4 (Version None)
Quarter: 2011Q4

REPORT INFORMATION
  Report Type: 
  Country: None (occurrence: None)
  Receive Date: 20111014
  Receipt Date: 20110930
  Transmission Date: 20120403
  Serious: Yes (Other)
  Sender: FDA-Public Use
  Company Number: US-BAYER-2011-028407

PATIENT
  Age: 21 Year
  Sex: Female
  Weight: 57.143 kg

DRUGS (6)
  1. ACIPHEX [Concomitant]
     Route: 048
  2. OXYCODONE HCL AND ACETAMINOPHEN [Concomitant]
     Dosage: UNK UNK, PRN
     Route: 048
  3. YASMIN [Suspect]
     Dosage: UNK
     Dates: start: 20060913, end: 20061010
  4. MULTI-VITAMIN [Concomitant]
     Route: 048
  5. YASMIN [Suspect]
     Indication: CONTRACEPTION
     Dosage: UNK
     Dates: start: 20050901, end: 20070701
  6. PROMETHEGAN [Concomitant]
     Dosage: UNK UNK, PRN
     Route: 054
     Dates: start: 20060906

REACTIONS (5)
  - CHOLELITHIASIS [None]
  - CHOLECYSTITIS CHRONIC [None]
  - GALLBLADDER DISORDER [None]
  - PAIN [None]
  - INJURY [None]
